FAERS Safety Report 6931459-3 (Version None)
Quarter: 2010Q3

REPORT INFORMATION
  Report Type: 
  Country: None (occurrence: None)
  Receive Date: 20100816
  Receipt Date: 20100810
  Transmission Date: 20110219
  Serious: Yes (Life-Threatening, Hospitalization)
  Sender: FDA-Public Use
  Company Number: 2010SP036041

PATIENT
  Sex: Female

DRUGS (2)
  1. SAPHRIS [Suspect]
     Indication: PRODUCT USED FOR UNKNOWN INDICATION
     Dosage: 5 MG, BID;
     Dates: start: 20100521, end: 20100524
  2. XANAX [Concomitant]

REACTIONS (4)
  - CARDIOMYOPATHY [None]
  - HYPOTENSION [None]
  - RESPIRATORY RATE DECREASED [None]
  - SEPSIS [None]
